FAERS Safety Report 5355539-1 (Version None)
Quarter: 2007Q2

REPORT INFORMATION
  Report Type: 
  Country: None (occurrence: None)
  Receive Date: 20070530
  Receipt Date: 20061130
  Transmission Date: 20071010
  Serious: Yes (Other)
  Sender: FDA-Public Use
  Company Number: US200609001442

PATIENT
  Sex: Male
  Weight: 136.5 kg

DRUGS (1)
  1. ZYPREXA [Suspect]
     Indication: ATTENTION DEFICIT/HYPERACTIVITY DISORDER
     Dosage: 10 MG
     Dates: start: 19961101, end: 19990901

REACTIONS (2)
  - DIABETES MELLITUS [None]
  - DIABETIC COMA [None]
